FAERS Safety Report 12591460 (Version 1)
Quarter: 2016Q3

REPORT INFORMATION
  Report Type: Spontaneous
  Country: US (occurrence: None)
  Receive Date: 20160725
  Receipt Date: 20160725
  Transmission Date: 20161109
  Serious: Yes (Life-Threatening, Hospitalization, Other)
  Sender: FDA-Public Use
  Company Number: None

PATIENT
  Age: 62 Year
  Sex: Female
  Weight: 68.04 kg

DRUGS (1)
  1. BUPROPION SR 150 MG, 150 MG [Suspect]
     Active Substance: BUPROPION
     Indication: SMOKING CESSATION THERAPY
     Dosage: 60 TABLET(S) ONCE A DAY TAKEN BY MOUTH
     Route: 048
     Dates: start: 20160411, end: 20160411

REACTIONS (6)
  - Depression [None]
  - Suicide attempt [None]
  - Headache [None]
  - Amnesia [None]
  - Restlessness [None]
  - Intentional overdose [None]

NARRATIVE: CASE EVENT DATE: 20160412
